FAERS Safety Report 7605434-X (Version None)
Quarter: 2011Q3

REPORT INFORMATION
  Report Type: 
  Country: None (occurrence: None)
  Receive Date: 20110713
  Receipt Date: 20110708
  Transmission Date: 20111222
  Serious: Yes (Death)
  Sender: FDA-Public Use
  Company Number: NL-CELGENEUS-114-21880-11051196

PATIENT
  Sex: Female
  Weight: 65 kg

DRUGS (11)
  1. REVLIMID [Suspect]
     Indication: MANTLE CELL LYMPHOMA
     Dosage: 25 MILLIGRAM
     Route: 048
     Dates: start: 20110307
  2. VALACICLOVIR [Concomitant]
     Indication: PROPHYLAXIS
     Dosage: 1000 MILLIGRAM
     Route: 065
  3. QVAR AUTOH [Concomitant]
     Indication: CHRONIC OBSTRUCTIVE PULMONARY DISEASE
     Route: 065
  4. OXYCONTIN [Concomitant]
     Indication: PAIN
     Dosage: 20 MILLIGRAM
     Route: 065
  5. MOVICOLON [Concomitant]
     Route: 065
  6. RITUXIMAB [Concomitant]
     Indication: MANTLE CELL LYMPHOMA
     Route: 048
     Dates: start: 20110307
  7. LACTULOSE [Concomitant]
     Dosage: 20 MILLILITER
     Route: 065
  8. PAROXETINE HCL [Concomitant]
     Indication: NERVOUSNESS
     Dosage: 20 MILLIGRAM
     Route: 065
  9. OXYCODONE HCL [Concomitant]
     Indication: PAIN
     Dosage: 30 MILLIGRAM
     Route: 065
  10. COTRIM [Concomitant]
     Indication: PROPHYLAXIS
     Route: 065
  11. FRAXIPARINE [Concomitant]
     Indication: THROMBOSIS PROPHYLAXIS
     Route: 065

REACTIONS (1)
  - MANTLE CELL LYMPHOMA [None]
